FAERS Safety Report 6926194-1 (Version None)
Quarter: 2010Q3

REPORT INFORMATION
  Report Type: 
  Country: None (occurrence: None)
  Receive Date: 20100816
  Receipt Date: 20100805
  Transmission Date: 20110219
  Serious: Yes (Hospitalization)
  Sender: FDA-Public Use
  Company Number: AU-PFIZER INC-2010096310

PATIENT
  Age: 68 Year
  Sex: Female
  Weight: 105 kg

DRUGS (18)
  1. CP-690,550 (TASOCITINIB) [Suspect]
     Indication: RHEUMATOID ARTHRITIS
     Dosage: 10 MG, 2X/DAY
     Route: 048
     Dates: start: 20091112, end: 20100716
  2. SALAZOPYRIN [Suspect]
     Indication: RHEUMATOID ARTHRITIS
     Dosage: 1 G, 2X/DAY
     Route: 048
     Dates: start: 20090730
  3. CRESTOR [Concomitant]
     Indication: BLOOD CHOLESTEROL
     Dosage: 10 MG, 1X/DAY
     Route: 048
     Dates: start: 19850101
  4. MOBIC [Concomitant]
     Indication: RHEUMATOID ARTHRITIS
     Dosage: 15 MG, 1X/DAY
     Route: 048
     Dates: start: 20000101
  5. GLIMEPIRIDE [Concomitant]
     Indication: TYPE 2 DIABETES MELLITUS
     Dosage: 2 MG, 1X/DAY
     Route: 048
     Dates: start: 20070101
  6. ZANIDIP [Concomitant]
     Indication: HYPERTENSION
     Dosage: 10 MG, 1X/DAY
     Route: 048
     Dates: start: 20040101, end: 20091205
  7. MICARDIS HCT [Concomitant]
     Indication: HYPERTENSION
     Dosage: 80/12.5MG
     Route: 048
     Dates: start: 20040101
  8. ACETAMINOPHEN W/ CODEINE [Concomitant]
     Indication: RHEUMATOID ARTHRITIS
     Dosage: UNK
     Route: 048
     Dates: start: 19950101
  9. ACETAMINOPHEN [Concomitant]
     Indication: RHEUMATOID ARTHRITIS
     Dosage: UNK
     Route: 048
     Dates: start: 19950101
  10. PHENERGAN [Concomitant]
     Indication: RHINITIS ALLERGIC
     Dosage: UNK
     Route: 048
     Dates: start: 19610101
  11. FOLIC ACID [Concomitant]
     Indication: VITAMIN SUPPLEMENTATION
     Dosage: UNK
     Route: 048
     Dates: start: 20090219, end: 20091112
  12. EPSOM SALTS [Concomitant]
     Indication: CONSTIPATION
     Dosage: 5 ML, AS NEEDED
     Route: 048
     Dates: start: 19870101
  13. CEFACLOR [Concomitant]
     Indication: UPPER RESPIRATORY TRACT INFECTION
     Dosage: 375 MG, 2X/DAY
     Route: 048
     Dates: start: 20100210, end: 20100215
  14. CEFACLOR [Concomitant]
     Dosage: 375 MG, 2X/DAY
     Route: 048
     Dates: start: 20100628, end: 20100704
  15. SYSTANE [Concomitant]
     Indication: DRY EYE
     Dosage: 2 GTT, 4X/DAY
     Route: 047
     Dates: start: 20100210
  16. CECLOR [Concomitant]
     Indication: PNEUMONIA
     Dosage: 375 MG, 3X/DAY
     Route: 048
     Dates: start: 20100705, end: 20100714
  17. RULIDE [Concomitant]
     Indication: PNEUMONIA
     Dosage: UNK
     Route: 048
     Dates: start: 20100705, end: 20100714
  18. AMOXICILLIN AND CLAVULANATE POTASSIUM [Concomitant]
     Indication: PNEUMONIA
     Dosage: 875/125 MG
     Route: 048
     Dates: start: 20100715, end: 20100725

REACTIONS (1)
  - CRYPTOCOCCOSIS [None]
